FAERS Safety Report 24079505 (Version 1)
Quarter: 2024Q3

REPORT INFORMATION
  Report Type: Spontaneous
  Country: IL (occurrence: IL)
  Receive Date: 20240711
  Receipt Date: 20240711
  Transmission Date: 20241017
  Serious: Yes (Other)
  Sender: BAXTER
  Company Number: IL-BAXTER-2024BAX021060

PATIENT
  Age: 33 Year
  Sex: Male

DRUGS (2)
  1. IFOSFAMIDE [Suspect]
     Active Substance: IFOSFAMIDE
     Indication: Schwannoma
     Dosage: UNK, AS A PART OF IE REGIMEN
     Route: 065
     Dates: start: 20230731, end: 20230910
  2. ETOPOSIDE [Suspect]
     Active Substance: ETOPOSIDE
     Indication: Schwannoma
     Dosage: UNK, AS A PART OF IE REGIMEN
     Route: 065
     Dates: start: 20230731, end: 20230910

REACTIONS (1)
  - Metastases to lung [Unknown]
